FAERS Safety Report 25276737 (Version 1)
Quarter: 2025Q2

REPORT INFORMATION
  Report Type: Spontaneous
  Country: IT (occurrence: IT)
  Receive Date: 20250507
  Receipt Date: 20250507
  Transmission Date: 20250717
  Serious: Yes (Other)
  Sender: AMGEN
  Company Number: IT-AMGEN-ITASP2025085591

PATIENT
  Sex: Female

DRUGS (6)
  1. FILGRASTIM [Suspect]
     Active Substance: FILGRASTIM
     Indication: Autologous haematopoietic stem cell transplant
     Route: 065
  2. CYCLOPHOSPHAMIDE [Concomitant]
     Active Substance: CYCLOPHOSPHAMIDE
     Indication: Autologous haematopoietic stem cell transplant
     Route: 065
  3. CARMUSTINE [Concomitant]
     Active Substance: CARMUSTINE
     Indication: Prophylaxis
  4. ETOPOSIDE [Concomitant]
     Active Substance: ETOPOSIDE
     Indication: Prophylaxis
  5. CYTARABINE [Concomitant]
     Active Substance: CYTARABINE
     Indication: Prophylaxis
  6. MELPHALAN [Concomitant]
     Active Substance: MELPHALAN
     Indication: Prophylaxis

REACTIONS (3)
  - Mucosal inflammation [Unknown]
  - Bone marrow failure [Recovered/Resolved]
  - Blood culture positive [Unknown]
